FAERS Safety Report 10899230 (Version 2)
Quarter: 2015Q2

REPORT INFORMATION
  Report Type: Spontaneous
  Country: PT (occurrence: PT)
  Receive Date: 20150309
  Receipt Date: 20150611
  Transmission Date: 20150821
  Serious: Yes (Death, Hospitalization)
  Sender: FDA-Public Use
  Company Number: PT-CELGENE-PRT-2015025414

PATIENT

DRUGS (1)
  1. AZACITIDINE INJECTABLE [Suspect]
     Active Substance: AZACITIDINE
     Indication: ACUTE MYELOID LEUKAEMIA
     Route: 065

REACTIONS (6)
  - Graft versus host disease in liver [Fatal]
  - Infection [Fatal]
  - Acute myeloid leukaemia [Fatal]
  - Pneumonia [Unknown]
  - Death [Fatal]
  - Cardiac arrest [Fatal]
